FAERS Safety Report 5645722-X (Version None)
Quarter: 2008Q1

REPORT INFORMATION
  Report Type: 
  Country: None (occurrence: None)
  Receive Date: 20080229
  Receipt Date: 20080220
  Transmission Date: 20080703
  Serious: Yes (Other)
  Sender: FDA-Public Use
  Company Number: US-PFIZER INC-2007067042

PATIENT
  Sex: Male
  Weight: 86.2 kg

DRUGS (2)
  1. LIPITOR [Suspect]
     Indication: BLOOD CHOLESTEROL INCREASED
     Dates: start: 20061001, end: 20061001
  2. LIPITOR [Suspect]
     Indication: HYPERLIPIDAEMIA

REACTIONS (11)
  - ARTHRITIS [None]
  - BLOOD CREATINE PHOSPHOKINASE INCREASED [None]
  - DEHYDRATION [None]
  - FULL BLOOD COUNT ABNORMAL [None]
  - HEPATIC STEATOSIS [None]
  - INFLAMMATION [None]
  - NEUROPATHY PERIPHERAL [None]
  - OEDEMA PERIPHERAL [None]
  - RED BLOOD CELL SEDIMENTATION RATE INCREASED [None]
  - RHABDOMYOLYSIS [None]
  - RHEUMATOID ARTHRITIS [None]
